FAERS Safety Report 4816595-X (Version None)
Quarter: 2005Q4

REPORT INFORMATION
  Report Type: 
  Country: None (occurrence: None)
  Receive Date: 20051028
  Receipt Date: 20051019
  Transmission Date: 20060501
  Serious: Yes (Hospitalization)
  Sender: FDA-Public Use
  Company Number: 440008M05USA

PATIENT
  Age: 60 Year
  Sex: Male
  Weight: 174 kg

DRUGS (15)
  1. SEROSTIM [Suspect]
     Indication: CACHEXIA
     Dosage: 3 MG,
  2. VIREAD [Concomitant]
  3. ANDROGEL [Concomitant]
  4. EPIVIR [Concomitant]
  5. ZYRTEC [Concomitant]
  6. VALTEEX (VALACICLOVIR HYDROCHLORIDE) [Concomitant]
  7. AVANDIA (ROSIGLIAZONE MALEATE) [Concomitant]
  8. LOPRESSOR [Concomitant]
  9. LEXIVA [Concomitant]
  10. ELAVIL [Concomitant]
  11. PREVACID [Concomitant]
  12. LIPITOR [Concomitant]
  13. TRICOR (FENOFIBRATE0 [Concomitant]
  14. PLAVIX [Concomitant]
  15. IMDUR [Concomitant]

REACTIONS (1)
  - SMALL INTESTINAL OBSTRUCTION [None]
